FAERS Safety Report 10012736 (Version 1)
Quarter: 2014Q1

REPORT INFORMATION
  Report Type: Report from Study
  Country: MX (occurrence: MX)
  Receive Date: 20140314
  Receipt Date: 20140314
  Transmission Date: 20141002
  Serious: Yes (Death, Hospitalization, Other)
  Sender: FDA-Public Use
  Company Number: PHHY2014MX031489

PATIENT
  Age: 83 Year
  Sex: Female
  Weight: 80 kg

DRUGS (3)
  1. DIOVAN [Suspect]
     Indication: HYPERTENSION
     Dosage: 160 MG, DAILY
     Route: 048
     Dates: end: 20130913
  2. EFFEXOR [Concomitant]
     Dosage: 1 DF, DAILY
  3. ALDACTONE [Concomitant]
     Dosage: 1 DF, DAILY
     Dates: end: 201309

REACTIONS (1)
  - Pulmonary embolism [Fatal]
